FAERS Safety Report 7247985-6 (Version None)
Quarter: 2011Q1

REPORT INFORMATION
  Report Type: 
  Country: None (occurrence: None)
  Receive Date: 20110127
  Receipt Date: 20110121
  Transmission Date: 20110831
  Serious: Yes (Hospitalization, Other)
  Sender: FDA-Public Use
  Company Number: US-PFIZER INC-2011015387

PATIENT
  Sex: Female

DRUGS (1)
  1. LYRICA [Suspect]
     Indication: PAIN
     Dosage: 150 MG, 2X/DAY

REACTIONS (12)
  - COGNITIVE DISORDER [None]
  - PANIC ATTACK [None]
  - THINKING ABNORMAL [None]
  - MALAISE [None]
  - INSOMNIA [None]
  - WEIGHT INCREASED [None]
  - MANIA [None]
  - ANXIETY [None]
  - ABNORMAL BEHAVIOUR [None]
  - AGITATION [None]
  - INCREASED APPETITE [None]
  - VOMITING [None]
